FAERS Safety Report 7341178-X (Version None)
Quarter: 2011Q1

REPORT INFORMATION
  Report Type: 
  Country: None (occurrence: None)
  Receive Date: 20110309
  Receipt Date: 20110302
  Transmission Date: 20110831
  Serious: Yes (Hospitalization)
  Sender: FDA-Public Use
  Company Number: B0703856A

PATIENT
  Sex: Female
  Weight: 45 kg

DRUGS (15)
  1. ALKERAN [Suspect]
     Indication: ALLOGENIC BONE MARROW TRANSPLANTATION THERAPY
     Dosage: 90MGM2 PER DAY
     Route: 042
     Dates: start: 20090606, end: 20090607
  2. MEDROL [Suspect]
     Dosage: 8MG PER DAY
     Route: 048
     Dates: start: 20090822, end: 20090826
  3. SOLU-MEDROL [Suspect]
     Route: 042
     Dates: start: 20090630, end: 20090821
  4. AMBISOME [Suspect]
     Indication: BRONCHOPULMONARY ASPERGILLOSIS
     Dosage: 100MG PER DAY
     Route: 042
     Dates: start: 20090511, end: 20090706
  5. SLOW-K [Concomitant]
     Dosage: 2400MG PER DAY
     Route: 048
     Dates: start: 20090522, end: 20090609
  6. METHOTREXATE [Concomitant]
     Dosage: 7MGM2 PER DAY
     Route: 065
     Dates: start: 20090612, end: 20090614
  7. ZOVIRAX [Concomitant]
     Indication: PROPHYLAXIS
     Dosage: 600MG PER DAY
     Route: 048
     Dates: start: 20090604, end: 20090616
  8. CHINESE MEDICINE [Suspect]
     Dosage: 1G PER DAY
     Route: 048
     Dates: start: 20090807, end: 20090812
  9. FLUDARA [Suspect]
     Indication: ALLOGENIC BONE MARROW TRANSPLANTATION THERAPY
     Dosage: 25MGM2 PER DAY
     Route: 042
     Dates: start: 20090603, end: 20090607
  10. DOBUTAMINE [Suspect]
     Route: 042
     Dates: start: 20090628, end: 20090707
  11. DIPRIVAN [Suspect]
     Route: 042
     Dates: start: 20090706, end: 20090721
  12. CICLOSPORIN [Concomitant]
     Indication: IMMUNOSUPPRESSION
     Dosage: 135MG PER DAY
     Route: 065
     Dates: start: 20090608, end: 20090630
  13. METHOTREXATE [Concomitant]
     Indication: IMMUNOSUPPRESSION
     Dosage: 10MGM2 PER DAY
     Route: 065
     Dates: start: 20090610, end: 20090610
  14. BIOFERMIN R [Concomitant]
     Indication: PROPHYLAXIS
     Dosage: 18MG PER DAY
     Route: 048
     Dates: start: 20090604, end: 20090701
  15. POLYMYXIN-B-SULFATE [Concomitant]
     Indication: PROPHYLAXIS
     Dosage: 3IU3 PER DAY
     Route: 048
     Dates: start: 20090604, end: 20090612

REACTIONS (2)
  - CARDIAC FAILURE ACUTE [None]
  - CARDIAC FAILURE CONGESTIVE [None]
